FAERS Safety Report 7727207-X (Version None)
Quarter: 2011Q3

REPORT INFORMATION
  Report Type: 
  Country: None (occurrence: None)
  Receive Date: 20110902
  Receipt Date: 20110816
  Transmission Date: 20111222
  Serious: No
  Sender: FDA-Public Use
  Company Number: US-BAYER-2011-073927

PATIENT
  Sex: Female

DRUGS (2)
  1. SODIUM BICARBONATE [Suspect]
     Dosage: 30 ML, ONCE
     Route: 042
     Dates: start: 20110816, end: 20110816
  2. MAGNEVIST [Suspect]
     Indication: NUCLEAR MAGNETIC RESONANCE IMAGING
     Dosage: 19 ML, ONCE
     Route: 042
     Dates: start: 20110816, end: 20110816

REACTIONS (1)
  - DRUG ADMINISTRATION ERROR [None]
